FAERS Safety Report 10372434 (Version 2)
Quarter: 2014Q4

REPORT INFORMATION
  Report Type: Spontaneous
  Country: US (occurrence: US)
  Receive Date: 20140808
  Receipt Date: 20141205
  Transmission Date: 20150528
  Serious: Yes (Hospitalization)
  Sender: FDA-Public Use
  Company Number: US-BRISTOL-MYERS SQUIBB COMPANY-21017694

PATIENT
  Age: 51 Year
  Sex: Male

DRUGS (1)
  1. SPRYCEL [Suspect]
     Active Substance: DASATINIB
     Indication: CHRONIC MYELOID LEUKAEMIA
     Dosage: 100MG-APR11 TO MAY11?DOSE REDUCED TO 80MG-MAY11 TO 01-APR-2012?6FEB12-30APR12: 70MG
     Route: 048
     Dates: start: 201104, end: 201204

REACTIONS (4)
  - Pleural effusion [Not Recovered/Not Resolved]
  - Abdominal pain [Unknown]
  - Platelet count decreased [Unknown]
  - Bone pain [Not Recovered/Not Resolved]

NARRATIVE: CASE EVENT DATE: 2013
